FAERS Safety Report 7261968-1 (Version None)
Quarter: 2011Q1

REPORT INFORMATION
  Report Type: 
  Country: None (occurrence: None)
  Receive Date: 20110130
  Receipt Date: 20101213
  Transmission Date: 20110831
  Serious: No
  Sender: FDA-Public Use
  Company Number: US-ABBOTT-10P-163-0691159-00

PATIENT
  Age: 80 Year
  Sex: Female

DRUGS (11)
  1. QUINAPRIL [Concomitant]
     Indication: PRODUCT USED FOR UNKNOWN INDICATION
  2. CIPROFLOXACIN [Concomitant]
     Indication: PAIN
  3. BYSTOLIC [Concomitant]
     Indication: PRODUCT USED FOR UNKNOWN INDICATION
  4. ASPIRIN [Concomitant]
     Indication: PAIN
  5. METHOTREXATE [Concomitant]
     Indication: PRODUCT USED FOR UNKNOWN INDICATION
  6. HUMIRA [Suspect]
     Indication: RHEUMATOID ARTHRITIS
     Dates: start: 20100901
  7. VITAMINS PREDFORTE [Concomitant]
     Indication: PRODUCT USED FOR UNKNOWN INDICATION
  8. PROPOXYPHENE HYDROCHLORIDE [Concomitant]
     Indication: PAIN
  9. BENICAR [Concomitant]
     Indication: PRODUCT USED FOR UNKNOWN INDICATION
  10. ASA [Concomitant]
     Indication: PRODUCT USED FOR UNKNOWN INDICATION
  11. XYZAL [Concomitant]
     Indication: PRODUCT USED FOR UNKNOWN INDICATION

REACTIONS (7)
  - FALL [None]
  - IRITIS [None]
  - SPINAL COLUMN INJURY [None]
  - PAIN [None]
  - INJECTION SITE PAIN [None]
  - COCCYDYNIA [None]
  - CONSTIPATION [None]
